FAERS Safety Report 23821447 (Version 1)
Quarter: 2024Q2

REPORT INFORMATION
  Report Type: Spontaneous
  Country: US (occurrence: None)
  Receive Date: 20240505
  Receipt Date: 20240505
  Transmission Date: 20240716
  Serious: Yes (Disabling)
  Sender: FDA-Public Use
  Company Number: None

PATIENT
  Age: 38 Year
  Sex: Female

DRUGS (3)
  1. DUPIXENT [Suspect]
     Active Substance: DUPILUMAB
     Indication: Eczema
  2. NIFEDIPINE [Concomitant]
     Active Substance: NIFEDIPINE
  3. LOSARTAN [Concomitant]
     Active Substance: LOSARTAN

REACTIONS (2)
  - Arthralgia [None]
  - Mobility decreased [None]
